FAERS Safety Report 10252061 (Version 1)
Quarter: 2014Q2

REPORT INFORMATION
  Report Type: Spontaneous
  Country: GB (occurrence: GB)
  Receive Date: 20140623
  Receipt Date: 20140623
  Transmission Date: 20141212
  Serious: Yes (Hospitalization)
  Sender: FDA-Public Use
  Company Number: PHFR2014GB004276

PATIENT
  Age: 77 Year
  Sex: Male
  Weight: 80 kg

DRUGS (9)
  1. TEGRETOL [Suspect]
     Dosage: UNK UKN, UNK
     Route: 048
  2. CALCICHEW [Concomitant]
     Dosage: UNK UKN, UNK
  3. ROSUVASTATIN [Concomitant]
     Dosage: UNK UKN, UNK
  4. ASPIRIN [Concomitant]
     Dosage: UNK UKN, UNK
  5. FLUOXETINE [Concomitant]
     Dosage: UNK UKN, UNK
  6. CARBAMAZEPINE [Concomitant]
     Dosage: UNK UKN, UNK
  7. BISOPROLOL [Concomitant]
     Dosage: UNK UKN, UNK
  8. METFORMIN [Concomitant]
     Dosage: UNK UKN, UNK
  9. CANDESARTAN [Concomitant]
     Dosage: UNK UKN, UNK

REACTIONS (5)
  - Hypoglobulinaemia [Not Recovered/Not Resolved]
  - Lymphadenopathy [Not Recovered/Not Resolved]
  - Eosinophilia [Not Recovered/Not Resolved]
  - Rash [Not Recovered/Not Resolved]
  - Thrombocytopenia [Not Recovered/Not Resolved]
